FAERS Safety Report 4352680-7 (Version None)
Quarter: 2004Q2

REPORT INFORMATION
  Report Type: 
  Country: None (occurrence: None)
  Receive Date: 20040429
  Receipt Date: 20040407
  Transmission Date: 20050107
  Serious: Yes (Hospitalization)
  Sender: FDA-Public Use
  Company Number: 6008338

PATIENT
  Age: 74 Year
  Sex: Male

DRUGS (6)
  1. BISOPROLOL FUMARATE [Suspect]
     Indication: HYPERTENSION
     Dosage: 15 MG ORAL
     Route: 048
     Dates: end: 20030916
  2. DIGITOXIN TAB [Suspect]
     Indication: CARDIAC FAILURE
     Dosage: 0,07 MG ORAL
     Route: 048
     Dates: end: 20030916
  3. ARELIX (PIRETANIDE) [Concomitant]
  4. CARMEN (LERCANIDIPINE) [Concomitant]
  5. DIOVAN [Concomitant]
  6. GLYBURIDE [Concomitant]

REACTIONS (9)
  - ANGIOSCLEROSIS [None]
  - BLOOD CREATININE INCREASED [None]
  - BLOOD GLUCOSE INCREASED [None]
  - BLOOD UREA INCREASED [None]
  - BRADYCARDIA [None]
  - CARDIOACTIVE DRUG LEVEL INCREASED [None]
  - DRUG INTERACTION [None]
  - SUPRAVENTRICULAR EXTRASYSTOLES [None]
  - SYNCOPE [None]
